FAERS Safety Report 7308330-0 (Version None)
Quarter: 2011Q1

REPORT INFORMATION
  Report Type: 
  Country: None (occurrence: None)
  Receive Date: 20110223
  Receipt Date: 20110215
  Transmission Date: 20110831
  Serious: Yes (Hospitalization)
  Sender: FDA-Public Use
  Company Number: B0689991A

PATIENT
  Sex: Female
  Weight: 24 kg

DRUGS (32)
  1. PREDONINE [Concomitant]
     Dosage: 30MG PER DAY
     Route: 065
     Dates: start: 20101029, end: 20101102
  2. VALTREX [Concomitant]
     Dosage: 750MG PER DAY
     Route: 048
     Dates: start: 20100826, end: 20100905
  3. BAKTAR [Concomitant]
     Dosage: 2IUAX PER DAY
     Route: 048
     Dates: start: 20100826
  4. POLYMYXIN-B-SULFATE [Concomitant]
     Dosage: 3IU3 PER DAY
     Route: 048
     Dates: start: 20100826, end: 20101003
  5. PREDNISOLONE [Concomitant]
     Dosage: 20MG PER DAY
     Route: 048
     Dates: start: 20101117, end: 20101130
  6. KYTRIL [Concomitant]
     Dosage: 3MG PER DAY
     Route: 042
     Dates: start: 20100826, end: 20100828
  7. URSO 250 [Concomitant]
     Dosage: 200MG PER DAY
     Route: 048
     Dates: start: 20100826, end: 20101012
  8. PREDNISOLONE [Concomitant]
     Dosage: 30MG PER DAY
     Route: 048
     Dates: start: 20101103, end: 20101116
  9. PREDONINE [Concomitant]
     Indication: IMMUNOSUPPRESSION
     Dosage: 40MG PER DAY
     Route: 065
     Dates: start: 20101024, end: 20101028
  10. TACROLIMUS [Concomitant]
     Indication: IMMUNOSUPPRESSION
     Dosage: .5MG PER DAY
     Route: 065
     Dates: start: 20100830
  11. ZOVIRAX [Concomitant]
     Dosage: 250MG PER DAY
     Route: 042
     Dates: start: 20100905, end: 20101021
  12. MINOMYCIN [Concomitant]
     Dosage: 80MG PER DAY
     Route: 042
     Dates: start: 20100909, end: 20100917
  13. SOLU-MEDROL [Concomitant]
     Dosage: 40MG PER DAY
     Route: 042
     Dates: start: 20101021, end: 20101023
  14. VANCOMYCIN HYDROCHLORIDE [Concomitant]
     Dosage: 1IUAX PER DAY
     Route: 048
     Dates: start: 20100826, end: 20100928
  15. DENOSINE [Concomitant]
     Dosage: 150MG PER DAY
     Dates: start: 20100918, end: 20101130
  16. LIPLE [Concomitant]
     Dosage: 10MCG PER DAY
     Route: 042
     Dates: start: 20100826, end: 20100905
  17. FIRSTCIN [Concomitant]
     Dosage: 2G PER DAY
     Route: 042
     Dates: start: 20100829, end: 20100906
  18. ZOSYN [Concomitant]
     Dosage: 4.5G PER DAY
     Dates: start: 20100905, end: 20100924
  19. GASTER [Concomitant]
     Dosage: 20MG PER DAY
     Route: 042
     Dates: start: 20101004
  20. METHOTREXATE [Concomitant]
     Indication: IMMUNOSUPPRESSION
     Dosage: 7MG PER DAY
     Route: 065
     Dates: start: 20100901, end: 20100911
  21. SOLU-MEDROL [Concomitant]
     Dosage: 50MG PER DAY
     Route: 042
     Dates: start: 20101018, end: 20101020
  22. FUNGIZONE [Concomitant]
     Dosage: 8ML PER DAY
     Route: 048
     Dates: start: 20100826
  23. GASTER [Concomitant]
     Dosage: 20MG PER DAY
     Route: 048
     Dates: start: 20100826, end: 20101003
  24. FUNGUARD [Concomitant]
     Dosage: 75MG PER DAY
     Route: 042
     Dates: start: 20100929
  25. CEFMETAZON [Concomitant]
     Dosage: 2G PER DAY
     Dates: start: 20101001
  26. MIRACLID [Concomitant]
     Dosage: 150IU3 PER DAY
     Route: 042
     Dates: start: 20101004, end: 20101021
  27. FOSMICIN-S [Concomitant]
     Dosage: 6G PER DAY
     Route: 042
     Dates: start: 20101006, end: 20101031
  28. ALKERAN [Suspect]
     Indication: ALLOGENIC BONE MARROW TRANSPLANTATION THERAPY
     Dosage: 70MGM2 PER DAY
     Route: 042
     Dates: start: 20100826, end: 20100828
  29. GRAN [Concomitant]
     Dates: start: 20100905, end: 20100918
  30. DENOSINE [Concomitant]
     Dosage: 250MG PER DAY
     Dates: start: 20100826, end: 20100829
  31. CARBENIN [Concomitant]
     Dosage: 1.5G PER DAY
     Route: 042
     Dates: start: 20100906, end: 20100929
  32. SOLU-MEDROL [Concomitant]
     Indication: IMMUNOSUPPRESSION
     Dosage: 60MG PER DAY
     Route: 042
     Dates: start: 20101014, end: 20101017

REACTIONS (2)
  - ENGRAFTMENT SYNDROME [None]
  - THROMBOTIC MICROANGIOPATHY [None]
